FAERS Safety Report 9113247 (Version 4)
Quarter: 2014Q3

REPORT INFORMATION
  Report Type: Spontaneous
  Country: US (occurrence: US)
  Receive Date: 20130201
  Receipt Date: 20140818
  Transmission Date: 20150326
  Serious: Yes (Hospitalization, Other)
  Sender: FDA-Public Use
  Company Number: US-009507513-1301USA013375

PATIENT
  Sex: Female
  Weight: 111.11 kg

DRUGS (1)
  1. NUVARING [Suspect]
     Active Substance: ETHINYL ESTRADIOL\ETONOGESTREL
     Indication: CONTRACEPTION
     Dosage: UNK
     Route: 067
     Dates: start: 20110407, end: 20110419

REACTIONS (15)
  - Pulmonary embolism [Unknown]
  - Chest pain [Unknown]
  - Blood pressure increased [Unknown]
  - Pulmonary mass [Unknown]
  - Treatment noncompliance [Unknown]
  - Pulmonary embolism [Recovered/Resolved]
  - Deep vein thrombosis [Recovered/Resolved]
  - Female sterilisation [Unknown]
  - Maternal exposure before pregnancy [Unknown]
  - Abscess drainage [Unknown]
  - Coagulopathy [Unknown]
  - Tachycardia [Recovered/Resolved]
  - Dyspnoea [Unknown]
  - Procedural complication [Not Recovered/Not Resolved]
  - Haemorrhagic anaemia [Not Recovered/Not Resolved]

NARRATIVE: CASE EVENT DATE: 201104
